FAERS Safety Report 14206332 (Version 3)
Quarter: 2018Q3

REPORT INFORMATION
  Report Type: Spontaneous
  Country: JP (occurrence: JP)
  Receive Date: 20171120
  Receipt Date: 20180925
  Transmission Date: 20181010
  Serious: Yes (Death, Hospitalization, Other)
  Sender: FDA-Public Use
  Company Number: JP-009507513-1707JPN001797J

PATIENT
  Age: 72 Year
  Sex: Female

DRUGS (9)
  1. SINSERON [Concomitant]
     Active Substance: INDISETRON HYDROCHLORIDE
     Indication: PROPHYLAXIS OF NAUSEA AND VOMITING
     Dosage: 3 MG, QD
     Route: 048
     Dates: start: 201701
  2. NEXIUM [Concomitant]
     Active Substance: ESOMEPRAZOLE MAGNESIUM
     Dosage: 276 MG, QD
     Route: 048
     Dates: start: 201701
  3. E KEPPRA [Concomitant]
     Active Substance: LEVETIRACETAM
     Indication: EPILEPSY
     Dosage: 366 MG, BID
     Route: 048
     Dates: start: 201701
  4. BACTRAMIN [Concomitant]
     Active Substance: SULFAMETHOXAZOLE\TRIMETHOPRIM
     Indication: ANTIFUNGAL PROPHYLAXIS
     Dosage: 27 MG, QD
     Route: 048
     Dates: start: 201701
  5. DOMPERIDONE [Concomitant]
     Active Substance: DOMPERIDONE
     Indication: PROPHYLAXIS OF NAUSEA AND VOMITING
     Dosage: 4 MG, TID
     Route: 048
     Dates: start: 201701
  6. TEMODAL [Suspect]
     Active Substance: TEMOZOLOMIDE
     Indication: GLIOBLASTOMA MULTIFORME
     Dosage: 95 MG, UNK
     Route: 048
     Dates: start: 20170210, end: 20170210
  7. TEMODAL [Suspect]
     Active Substance: TEMOZOLOMIDE
     Dosage: 188 MG, QD
     Route: 048
     Dates: start: 20170306, end: 20170630
  8. TEMODAL [Suspect]
     Active Substance: TEMOZOLOMIDE
     Indication: GLIOBLASTOMA MULTIFORME
     Dosage: 95 MG, QD
     Route: 041
     Dates: start: 20170206, end: 20170209
  9. TEMODAL [Suspect]
     Active Substance: TEMOZOLOMIDE
     Dosage: 125 MG, QD
     Route: 041
     Dates: start: 20170807, end: 20180316

REACTIONS (4)
  - Vomiting [Recovered/Resolved]
  - Marasmus [Fatal]
  - Intestinal obstruction [Recovering/Resolving]
  - Neutropenia [Recovered/Resolved]

NARRATIVE: CASE EVENT DATE: 20170210
